FAERS Safety Report 9962013 (Version 1)
Quarter: 2014Q1

REPORT INFORMATION
  Report Type: Report from Study
  Country: US (occurrence: US)
  Receive Date: 20140305
  Receipt Date: 20140305
  Transmission Date: 20141002
  Serious: No
  Sender: FDA-Public Use
  Company Number: US-ABBVIE-13P-163-1113785-00

PATIENT
  Age: 50 Year
  Sex: Female

DRUGS (5)
  1. HUMIRA [Suspect]
     Indication: CROHN^S DISEASE
     Dates: start: 20130308, end: 20130308
  2. HUMIRA [Suspect]
     Dates: start: 20130322, end: 20130322
  3. HUMIRA [Suspect]
     Dates: start: 20130405
  4. LIALDA [Concomitant]
     Indication: CROHN^S DISEASE
     Dates: start: 201212
  5. THYROID REPLACEMENT [Concomitant]
     Indication: HYPOTHYROIDISM
     Dates: start: 201303

REACTIONS (3)
  - Drug ineffective [Not Recovered/Not Resolved]
  - Cystitis [Unknown]
  - Kidney infection [Unknown]
